FAERS Safety Report 7704158-8 (Version None)
Quarter: 2011Q3

REPORT INFORMATION
  Report Type: 
  Country: None (occurrence: None)
  Receive Date: 20110823
  Receipt Date: 20110808
  Transmission Date: 20111222
  Serious: Yes (Hospitalization, Other)
  Sender: FDA-Public Use
  Company Number: DE-ACTELION-A-US2011-51011

PATIENT

DRUGS (12)
  1. CARBAMAZEPINE [Concomitant]
  2. ADALAT CC [Concomitant]
  3. LOSARTAN [Concomitant]
  4. SERTRALINE HYDROCHLORIDE [Concomitant]
  5. ALBUTEROL [Concomitant]
  6. ACETAMINOPHEN [Concomitant]
  7. PROCHLORPERAZIN [Concomitant]
  8. HYDROXYCHLOROQUINE [Concomitant]
  9. VENTAVIS [Suspect]
     Indication: PRODUCT USED FOR UNKNOWN INDICATION
     Dosage: UNK
     Route: 042
     Dates: start: 20110612
  10. ASPIRIN [Concomitant]
  11. TEMAZEPAM [Concomitant]
  12. LAMOTRIGINE [Concomitant]

REACTIONS (1)
  - CONVULSION [None]
